FAERS Safety Report 11990331 (Version 2)
Quarter: 2016Q1

REPORT INFORMATION
  Report Type: Report from Study
  Country: DE (occurrence: DE)
  Receive Date: 20160202
  Receipt Date: 20160218
  Transmission Date: 20160526
  Serious: Yes (Other)
  Sender: FDA-Public Use
  Company Number: DE-ABBVIE-16K-062-1547320-00

PATIENT
  Age: 30 Year
  Sex: Female
  Weight: 54 kg

DRUGS (1)
  1. HUMIRA [Suspect]
     Active Substance: ADALIMUMAB
     Indication: CROHN^S DISEASE
     Route: 058
     Dates: start: 20110426, end: 20151215

REACTIONS (6)
  - Gastrointestinal inflammation [Unknown]
  - Ileal stenosis [Unknown]
  - Abdominal adhesions [Not Recovered/Not Resolved]
  - Volvulus [Not Recovered/Not Resolved]
  - Drug ineffective [Unknown]
  - Intestinal stenosis [Not Recovered/Not Resolved]

NARRATIVE: CASE EVENT DATE: 20151215
